FAERS Safety Report 26109345 (Version 1)
Quarter: 2025Q4

REPORT INFORMATION
  Report Type: Spontaneous
  Country: JP (occurrence: JP)
  Receive Date: 20251201
  Receipt Date: 20251201
  Transmission Date: 20260118
  Serious: Yes (Other)
  Sender: MALLINCKRODT
  Company Number: JP-MALLINCKRODT-MNK202507542

PATIENT
  Age: 80 Year

DRUGS (1)
  1. AMITIZA [Suspect]
     Active Substance: LUBIPROSTONE
     Indication: Constipation
     Route: 048

REACTIONS (4)
  - Neoplasm malignant [Unknown]
  - Chronic kidney disease [Unknown]
  - Osteoporosis [Unknown]
  - Drug ineffective [Unknown]
